FAERS Safety Report 7658116-2 (Version None)
Quarter: 2011Q3

REPORT INFORMATION
  Report Type: 
  Country: None (occurrence: None)
  Receive Date: 20110805
  Receipt Date: 20110726
  Transmission Date: 20111222
  Serious: Yes (Other)
  Sender: FDA-Public Use
  Company Number: CA-JNJFOC-20110712059

PATIENT
  Sex: Male
  Weight: 107 kg

DRUGS (2)
  1. IMURAN [Concomitant]
  2. REMICADE [Suspect]
     Indication: CROHN'S DISEASE
     Route: 042
     Dates: start: 20100917

REACTIONS (1)
  - ENDODONTIC PROCEDURE [None]
